FAERS Safety Report 8627620 (Version 4)
Quarter: 2014Q1

REPORT INFORMATION
  Report Type: Report from Study
  Country: JP (occurrence: JP)
  Receive Date: 20120621
  Receipt Date: 20140124
  Transmission Date: 20141002
  Serious: Yes (Other)
  Sender: FDA-Public Use
  Company Number: JP-VERTEX PHARMACEUTICALS INC.-AE-2012-008840

PATIENT
  Age: 46 Year
  Sex: Male

DRUGS (10)
  1. VX-950 (TELAPREVIR) [Suspect]
     Indication: CHRONIC HEPATITIS C
     Dosage: 2250 MG, QD
     Route: 048
     Dates: start: 20120207, end: 20120305
  2. VX-950 (TELAPREVIR) [Suspect]
     Dosage: 1500 MG, QD
     Route: 048
     Dates: start: 20120306, end: 20120409
  3. PEGINTRON [Suspect]
     Indication: CHRONIC HEPATITIS C
     Dosage: 1.5 ?G/KG, WEEK
     Route: 058
     Dates: start: 20120207, end: 20120609
  4. REBETOL [Suspect]
     Indication: CHRONIC HEPATITIS C
     Dosage: 1000 MG, QD
     Route: 048
     Dates: start: 20120207, end: 20120220
  5. REBETOL [Suspect]
     Dosage: 800 MG, QD
     Route: 048
     Dates: start: 20120221, end: 20120227
  6. REBETOL [Suspect]
     Dosage: 400 MG, QD
     Route: 048
     Dates: start: 20120228, end: 20120609
  7. PROTECADIN [Concomitant]
     Dosage: 10 MG, QD
     Route: 048
     Dates: end: 20120701
  8. ALLOPURINOL [Concomitant]
     Dosage: 100 MG, QD
     Route: 048
     Dates: end: 20120609
  9. OLMETEC [Concomitant]
     Dosage: 20 MG, QD
     Route: 048
  10. LOXOPROFEN [Concomitant]
     Dosage: 60 MG, QD
     Route: 048
     Dates: start: 20120508, end: 20120609

REACTIONS (1)
  - Retinal haemorrhage [Recovered/Resolved]
